FAERS Safety Report 6414529-8 (Version None)
Quarter: 2009Q4

REPORT INFORMATION
  Report Type: 
  Country: None (occurrence: None)
  Receive Date: 20091026
  Receipt Date: 20091019
  Transmission Date: 20100525
  Serious: Yes (Disabling)
  Sender: FDA-Public Use
  Company Number: GB-AVENTIS-200911536GDDC

PATIENT
  Age: 40 Year
  Sex: Female
  Weight: 40 kg

DRUGS (2)
  1. LANTUS [Suspect]
     Route: 058
     Dates: start: 20080901
  2. METFORMIN HCL [Concomitant]
     Route: 048
     Dates: start: 20060201

REACTIONS (4)
  - DIABETIC NEUROPATHY [None]
  - NODULE ON EXTREMITY [None]
  - OEDEMA PERIPHERAL [None]
  - PAIN IN EXTREMITY [None]
